FAERS Safety Report 26070170 (Version 1)
Quarter: 2025Q4

REPORT INFORMATION
  Report Type: Spontaneous
  Country: AR (occurrence: AR)
  Receive Date: 20251120
  Receipt Date: 20251120
  Transmission Date: 20260118
  Serious: Yes (Other)
  Sender: CELLTRION
  Company Number: AR-CELLTRION INC.-2025AR041633

PATIENT

DRUGS (1)
  1. RITUXIMAB [Suspect]
     Active Substance: RITUXIMAB
     Indication: Autoimmune haemolytic anaemia
     Dosage: 375 MG/M2, EVERY 1 WEEK

REACTIONS (2)
  - Pulmonary embolism [Unknown]
  - Drug ineffective for unapproved indication [Unknown]
